FAERS Safety Report 4886791-4 (Version None)
Quarter: 2006Q1

REPORT INFORMATION
  Report Type: 
  Country: None (occurrence: None)
  Receive Date: 20060119
  Receipt Date: 20060119
  Transmission Date: 20060701
  Serious: Yes (Hospitalization)
  Sender: FDA-Public Use
  Company Number: None

PATIENT
  Age: 84 Year
  Sex: Male
  Weight: 65.3 kg

DRUGS (17)
  1. SPIRONOLACTONE [Suspect]
  2. CARVEDILOL [Concomitant]
  3. GLIPIZIDE [Concomitant]
  4. CEFUROXIME AXETIL [Concomitant]
  5. GUAIFENESIN [Concomitant]
  6. ASPIRIN [Concomitant]
  7. FORMOTEROL FUMARATE [Concomitant]
  8. SPIRONOLACTONE [Concomitant]
  9. COUMADIN [Concomitant]
  10. SODIUM POLYSTYRENE SULFONATE [Concomitant]
  11. FUROSEMIDE [Concomitant]
  12. ACETAMINOPHEN [Concomitant]
  13. SIMVASTATIN [Concomitant]
  14. IPRATROPIUM BROMIDE [Concomitant]
  15. INSULIN REG HUMAN    NOVOLIN R [Concomitant]
  16. ALBUTEROL SULFATE AUTOHALER [Concomitant]
  17. AZITHROMYCIN [Concomitant]

REACTIONS (1)
  - HYPERKALAEMIA [None]
